FAERS Safety Report 8799876 (Version 1)
Quarter: 2012Q4

REPORT INFORMATION
  Report Type: 
  Country: US (occurrence: US)
  Receive Date: 20120919
  Receipt Date: 20120919
  Transmission Date: 20130627
  Serious: Yes (Hospitalization, Other)
  Sender: FDA-Public Use
  Company Number: US-BAYER-2012-095929

PATIENT
  Age: 67 Year
  Sex: Male

DRUGS (14)
  1. ASPIRIN [Suspect]
     Indication: ATRIAL FIBRILLATION
     Dosage: UNK
     Dates: start: 20070420, end: 20120103
  2. VOTRIENT [Suspect]
     Indication: RENAL CELL CARCINOMA
     Dosage: UNK
     Route: 042
     Dates: start: 20110614, end: 20111204
  3. UROXATRAL [Concomitant]
     Dosage: UNK
     Dates: start: 20060825
  4. FOLIC ACID [Concomitant]
     Dosage: UNK
     Dates: start: 20060825
  5. NIASPAN [Concomitant]
     Dosage: UNK
     Dates: start: 20091103
  6. CENTRUM [Concomitant]
     Dosage: UNK
     Dates: start: 20060825
  7. ESTER-C [Concomitant]
     Dosage: UNK
     Dates: start: 20060825
  8. VITAMIN B12 [Concomitant]
     Dosage: UNK
     Dates: start: 20110430
  9. VITAMIN D [Concomitant]
     Dosage: UNK
     Dates: start: 20100316
  10. TOPROL [Concomitant]
     Dosage: UNK
     Dates: start: 20060825
  11. OPANA [Concomitant]
     Dosage: UNK
     Dates: start: 20101221, end: 20110531
  12. CIPRO [Concomitant]
     Dosage: UNK
     Dates: start: 20110503, end: 20110531
  13. MAGNESIUM [Concomitant]
     Dosage: UNK
     Dates: start: 20110430
  14. PSYLLIUM HYDROPHILIC MUCILLOID [Concomitant]
     Dosage: UNK
     Dates: start: 20060825

REACTIONS (4)
  - Headache [None]
  - Blindness [None]
  - Vision blurred [None]
  - Haemorrhage intracranial [None]
